FAERS Safety Report 10553723 (Version 1)
Quarter: 2014Q4

REPORT INFORMATION
  Report Type: Spontaneous
  Country: US (occurrence: None)
  Receive Date: 20141023
  Receipt Date: 20141023
  Transmission Date: 20150529
  Serious: No
  Sender: FDA-Public Use
  Company Number: AP356-01246-SPO-US

PATIENT
  Age: 56 Year
  Sex: Female
  Weight: 124 kg

DRUGS (12)
  1. BIOTIN (BIOTIN) [Concomitant]
  2. CLONIDINE (CLONIDINE) [Concomitant]
     Active Substance: CLONIDINE
  3. KLOR0CON (POTASSIUM CHLORIDE) [Concomitant]
  4. KETOCONAZOLE CREAM (KETOCONAZOLE) [Concomitant]
  5. COLECALCIFEROL (VIT D3) COLECALCIFEROL) [Concomitant]
  6. DOXAZOSIN [Concomitant]
     Active Substance: DOXAZOSIN\DOXAZOSIN MESYLATE
  7. METOPROLOL (MEOPROLOL) [Concomitant]
  8. AMLODIPINE/VALARTAN/HCT (ANTIHYPERTENSIVES AND DIURETICS IN COMBINATION) [Concomitant]
  9. PRAVASTATIN SODIUM (PRAVASTATIN SODIUM) [Concomitant]
  10. BELVIQ [Suspect]
     Active Substance: LORCASERIN HYDROCHLORIDE
     Indication: WEIGHT DECREASED
     Route: 048
     Dates: start: 20140812, end: 20140817
  11. CINNAMON (CINNAMOMUM VERUM) [Concomitant]
  12. JANUMET [Concomitant]
     Active Substance: METFORMIN HYDROCHLORIDE\SITAGLIPTIN PHOSPHATE

REACTIONS (3)
  - Dry mouth [None]
  - Drug dose omission [None]
  - Fatigue [None]

NARRATIVE: CASE EVENT DATE: 20140813
